FAERS Safety Report 14816651 (Version 8)
Quarter: 2019Q1

REPORT INFORMATION
  Report Type: Report from Study
  Country: JP (occurrence: JP)
  Receive Date: 20180426
  Receipt Date: 20190208
  Transmission Date: 20190417
  Serious: Yes (Hospitalization)
  Sender: FDA-Public Use
  Company Number: JP-EISAI MEDICAL RESEARCH-EC-2018-038301

PATIENT
  Age: 70 Year
  Sex: Male
  Weight: 73 kg

DRUGS (18)
  1. THYRADIN S [Concomitant]
     Active Substance: LEVOTHYROXINE SODIUM
  2. MIGLITOL. [Concomitant]
     Active Substance: MIGLITOL
  3. HEPARINOID [Concomitant]
     Active Substance: CHONDROITIN SULFATE (BOVINE)
  4. GLYDIL [Concomitant]
  5. APHTASOLON [Concomitant]
  6. LENVATINIB [Suspect]
     Active Substance: LENVATINIB
     Indication: RENAL CELL CARCINOMA
     Route: 048
     Dates: start: 20180330, end: 20180418
  7. ACTOS [Concomitant]
     Active Substance: PIOGLITAZONE HYDROCHLORIDE
  8. DESALEX [Concomitant]
     Active Substance: DESLORATADINE
  9. MINOMYCIN [Concomitant]
     Active Substance: MINOCYCLINE HYDROCHLORIDE
  10. LENVATINIB [Suspect]
     Active Substance: LENVATINIB
     Route: 048
     Dates: start: 20180501, end: 20180621
  11. PEMBROLIZUMAB. [Suspect]
     Active Substance: PEMBROLIZUMAB
     Indication: RENAL CELL CARCINOMA
     Route: 041
     Dates: start: 20180330, end: 20180330
  12. LIOVEL [Concomitant]
     Active Substance: ALOGLIPTIN BENZOATE\PIOGLITAZONE HYDROCHLORIDE
  13. URIEF [Concomitant]
     Active Substance: SILODOSIN
  14. FULMETA [Concomitant]
     Active Substance: MOMETASONE
  15. NESINA [Concomitant]
     Active Substance: ALOGLIPTIN BENZOATE
  16. DERMOVATE [Concomitant]
     Active Substance: CLOBETASOL
  17. METGLUCO [Concomitant]
     Active Substance: METFORMIN HYDROCHLORIDE
  18. EVIPROSTAT [Concomitant]
     Active Substance: CHIMAPHILA UMBELLATA\MANGANESE CHLORIDE\POPULUS TREMULOIDES\SODIUM TAUROCHOLATE

REACTIONS (2)
  - Autoimmune hepatitis [Recovered/Resolved]
  - Erythema multiforme [Recovering/Resolving]

NARRATIVE: CASE EVENT DATE: 20180419
